FAERS Safety Report 8651507 (Version 5)
Quarter: 2013Q3

REPORT INFORMATION
  Report Type: Spontaneous
  Country: US (occurrence: US)
  Receive Date: 20120706
  Receipt Date: 20130904
  Transmission Date: 20140515
  Serious: Yes (Other)
  Sender: FDA-Public Use
  Company Number: US-BAYER-2012-064978

PATIENT
  Age: 32 Year
  Sex: Female
  Weight: 61.68 kg

DRUGS (4)
  1. MIRENA [Suspect]
     Indication: CONTRACEPTION
     Dosage: 20 MCG/24HR, CONT
     Route: 015
     Dates: start: 20120627, end: 20120627
  2. MIRENA [Suspect]
     Indication: CONTRACEPTION
     Dosage: 20 MCG/24HR, CONT
     Route: 015
     Dates: start: 20120627, end: 20130709
  3. MIRENA [Suspect]
     Indication: CONTRACEPTION
     Dosage: 20 MCG/24HR, CONT
     Route: 015
     Dates: start: 20130709, end: 20130710
  4. CYTOTEC [Concomitant]
     Dosage: UNK
     Route: 048
     Dates: start: 20120627, end: 20120627

REACTIONS (10)
  - Embedded device [Recovered/Resolved]
  - Procedural pain [Recovered/Resolved]
  - Device deployment issue [Recovered/Resolved]
  - Uterine perforation [Recovered/Resolved with Sequelae]
  - Device dislocation [Recovered/Resolved with Sequelae]
  - Amenorrhoea [None]
  - Vaginal haemorrhage [None]
  - Device expulsion [None]
  - Contusion [None]
  - Impaired healing [None]
